FAERS Safety Report 8110647-7 (Version None)
Quarter: 2012Q1

REPORT INFORMATION
  Report Type: 
  Country: None (occurrence: None)
  Receive Date: 20120201
  Receipt Date: 20120201
  Transmission Date: 20120608
  Serious: Yes (Other)
  Sender: FDA-Public Use
  Company Number: None

PATIENT

DRUGS (1)
  1. PREMARIN [Suspect]
     Indication: CONTRACEPTION
     Dosage: 1.25 MG 1 PILL DAILY
     Dates: start: 20120111, end: 20120117

REACTIONS (6)
  - HOT FLUSH [None]
  - ANXIETY [None]
  - FATIGUE [None]
  - PRODUCT BLISTER PACKAGING ISSUE [None]
  - MEDICATION ERROR [None]
  - CHEST PAIN [None]
